FAERS Safety Report 6674699-3 (Version None)
Quarter: 2010Q2

REPORT INFORMATION
  Report Type: 
  Country: None (occurrence: None)
  Receive Date: 20100409
  Receipt Date: 20100330
  Transmission Date: 20101027
  Serious: Yes (Death)
  Sender: FDA-Public Use
  Company Number: JP-JNJFOC-20100401082

PATIENT
  Sex: Female
  Weight: 44 kg

DRUGS (5)
  1. REMICADE [Suspect]
     Indication: RHEUMATOID ARTHRITIS
     Dosage: 2ND INFUSION
     Route: 042
  2. REMICADE [Suspect]
     Route: 042
  3. RHEUMATREX [Suspect]
     Indication: RHEUMATOID ARTHRITIS
     Route: 048
  4. PREDNISONE TAB [Suspect]
     Indication: DRUG USE FOR UNKNOWN INDICATION
  5. STEROIDS NOS [Concomitant]

REACTIONS (2)
  - CYTOMEGALOVIRUS INFECTION [None]
  - PNEUMONIA [None]
